FAERS Safety Report 5206581-2 (Version None)
Quarter: 2007Q1

REPORT INFORMATION
  Report Type: 
  Country: None (occurrence: None)
  Receive Date: 20070109
  Receipt Date: 20061229
  Transmission Date: 20070707
  Serious: Yes (Other)
  Sender: FDA-Public Use
  Company Number: 231678

PATIENT
  Age: 22 Year
  Sex: Female
  Weight: 141.8 kg

DRUGS (7)
  1. OMALIZUMAB(OMALIZUMAB) PWDR + SOLVENT,INJECTION SOLN, 150MG [Suspect]
     Dosage: 225 MG, SUBCUTANEOUS
     Route: 058
     Dates: start: 20060629
  2. THEOPHYLLINE [Concomitant]
  3. ADVAIR DISKUS 100/50 [Concomitant]
  4. SINGULAIR [Concomitant]
  5. HYDROCHLOROTHIAZIDE [Concomitant]
  6. PREVACID [Concomitant]
  7. ALBUTEROL (ALBUTEROL/ALBUTEROL SULFATE) [Concomitant]

REACTIONS (5)
  - BURNING SENSATION [None]
  - CHEST DISCOMFORT [None]
  - CHEST PAIN [None]
  - DIZZINESS [None]
  - NAUSEA [None]
